FAERS Safety Report 12744522 (Version 1)
Quarter: 2016Q3

REPORT INFORMATION
  Report Type: Spontaneous
  Country: US (occurrence: US)
  Receive Date: 20160914
  Receipt Date: 20160914
  Transmission Date: 20161109
  Serious: No
  Sender: FDA-Public Use
  Company Number: US-JAZZ-2016-US-009451

PATIENT
  Age: 40 Year
  Sex: Female

DRUGS (16)
  1. FML LIQUIFILM [Concomitant]
  2. PAMPRIN [Concomitant]
     Active Substance: IBUPROFEN
  3. VENOFER [Concomitant]
     Active Substance: IRON SUCROSE
  4. XYREM [Suspect]
     Active Substance: SODIUM OXYBATE
     Indication: HYPERSOMNIA
     Dosage: 2.25 G, BID
     Route: 048
     Dates: start: 201605
  5. PRENATAL FORMULA [Concomitant]
  6. RESTASIS [Concomitant]
     Active Substance: CYCLOSPORINE
  7. WELLBUTRIN XL [Concomitant]
     Active Substance: BUPROPION HYDROCHLORIDE
  8. TYLENOL EXTRA STRENGTH [Concomitant]
     Active Substance: ACETAMINOPHEN
  9. GAMUNEX-C [Concomitant]
     Active Substance: HUMAN IMMUNOGLOBULIN G
  10. ZYRTEC [Concomitant]
     Active Substance: CETIRIZINE HYDROCHLORIDE
  11. COENZYME Q10 [Concomitant]
     Active Substance: UBIDECARENONE
  12. THERMOTABS [Concomitant]
  13. CYMBALTA [Concomitant]
     Active Substance: DULOXETINE HYDROCHLORIDE
  14. MODAFINIL. [Concomitant]
     Active Substance: MODAFINIL
  15. SINGULAIR [Concomitant]
     Active Substance: MONTELUKAST SODIUM
  16. VITAMIN D [Concomitant]
     Active Substance: CHOLECALCIFEROL

REACTIONS (2)
  - Vision blurred [Unknown]
  - Feeling abnormal [Unknown]

NARRATIVE: CASE EVENT DATE: 201605
